FAERS Safety Report 12961633 (Version 1)
Quarter: 2016Q4

REPORT INFORMATION
  Report Type: Spontaneous
  Country: JP (occurrence: JP)
  Receive Date: 20161121
  Receipt Date: 20161121
  Transmission Date: 20170207
  Serious: Yes (Other)
  Sender: FDA-Public Use
  Company Number: JP-ELI_LILLY_AND_COMPANY-JP201611004177

PATIENT
  Age: 12 Year
  Sex: Female
  Weight: 25.4 kg

DRUGS (2)
  1. GEMZAR [Suspect]
     Active Substance: GEMCITABINE HYDROCHLORIDE
     Indication: HEPATOCELLULAR CARCINOMA
     Dosage: UNK
     Route: 042
  2. OXALIPLATIN. [Concomitant]
     Active Substance: OXALIPLATIN
     Indication: HEPATOCELLULAR CARCINOMA

REACTIONS (4)
  - Ileus [Unknown]
  - Off label use [Recovered/Resolved]
  - Decreased appetite [Unknown]
  - Neuropathy peripheral [Unknown]
